FAERS Safety Report 8549248-5 (Version None)
Quarter: 2012Q3

REPORT INFORMATION
  Report Type: 
  Country: None (occurrence: None)
  Receive Date: 20120730
  Receipt Date: 20120727
  Transmission Date: 20120928
  Serious: Yes (Other)
  Sender: FDA-Public Use
  Company Number: PHHY2012ES053170

PATIENT
  Age: 64 Year
  Sex: Female

DRUGS (2)
  1. TASIGNA [Suspect]
     Dosage: 200 MG, Q12H
  2. TASIGNA [Suspect]
     Dosage: 400 MG, Q12H
     Dates: start: 20120110

REACTIONS (6)
  - ELECTROCARDIOGRAM QT PROLONGED [None]
  - NAUSEA [None]
  - LIPASE INCREASED [None]
  - VOMITING [None]
  - PALPITATIONS [None]
  - CHEST PAIN [None]
